FAERS Safety Report 8761358 (Version 2)
Quarter: 2012Q4

REPORT INFORMATION
  Report Type: 
  Country: FR (occurrence: FR)
  Receive Date: 20120830
  Receipt Date: 20121016
  Transmission Date: 20130627
  Serious: Yes (Other)
  Sender: FDA-Public Use
  Company Number: FR-MERCK-1208FRA008995

PATIENT
  Age: 50 Year
  Sex: Female

DRUGS (6)
  1. POLARAMINE [Suspect]
     Indication: PRODUCT USED FOR UNKNOWN INDICATION
     Dosage: 5 mg, Once
     Route: 042
     Dates: start: 20120717, end: 20120717
  2. EMEND [Suspect]
     Indication: PRODUCT USED FOR UNKNOWN INDICATION
     Dosage: 125 mg, Once
     Route: 048
     Dates: start: 20120717, end: 20120717
  3. EMEND [Suspect]
     Dosage: 80 mg, qd
     Route: 048
     Dates: start: 20120718, end: 20120719
  4. DOCETAXEL [Suspect]
     Indication: BREAST CANCER
     Dosage: 160 mg, Once
     Route: 042
     Dates: start: 20120717, end: 20120717
  5. SOLUPRED [Suspect]
     Dosage: 60 mg, qd
     Route: 048
     Dates: start: 20120716, end: 20120718
  6. AZANTAC [Suspect]
     Dosage: 50 mg, Once
     Route: 042
     Dates: start: 20120717, end: 20120717

REACTIONS (2)
  - Palmar-plantar erythrodysaesthesia syndrome [Recovered/Resolved]
  - Oral disorder [Recovered/Resolved]
